FAERS Safety Report 15301663 (Version 2)
Quarter: 2019Q1

REPORT INFORMATION
  Report Type: Spontaneous
  Country: FR (occurrence: FR)
  Receive Date: 20180821
  Receipt Date: 20190221
  Transmission Date: 20190417
  Serious: Yes (Death, Hospitalization, Other)
  Sender: FDA-Public Use
  Company Number: FR-MYLANLABS-2018M1062712

PATIENT
  Age: 59 Year
  Sex: Male

DRUGS (1)
  1. BISOPROLOL [Suspect]
     Active Substance: BISOPROLOL
     Indication: ARRHYTHMIA
     Dosage: UNK
     Dates: start: 20131212, end: 20131212

REACTIONS (7)
  - Cardiac failure [Unknown]
  - Erysipelas [Unknown]
  - Dyspnoea [Unknown]
  - Mouth haemorrhage [Unknown]
  - Death [Fatal]
  - Hepatic failure [Unknown]
  - Renal failure [Unknown]

NARRATIVE: CASE EVENT DATE: 20180327
